FAERS Safety Report 25984135 (Version 1)
Quarter: 2025Q4

REPORT INFORMATION
  Report Type: Report from Study
  Country: US (occurrence: US)
  Receive Date: 20251031
  Receipt Date: 20251031
  Transmission Date: 20260117
  Serious: No
  Sender: TRAVERE THERAPEUTICS
  Company Number: US-TRAVERE-2025TVT01758

PATIENT
  Age: 36 Year
  Sex: Female

DRUGS (11)
  1. FILSPARI [Suspect]
     Active Substance: SPARSENTAN
     Indication: IgA nephropathy
     Route: 048
     Dates: start: 20250612
  2. PREDNISONE [Suspect]
     Active Substance: PREDNISONE
     Indication: Product used for unknown indication
  3. ANNOVERA [Concomitant]
     Active Substance: ETHINYL ESTRADIOL\SEGESTERONE ACETATE
  4. BACTRIM [Concomitant]
     Active Substance: SULFAMETHOXAZOLE\TRIMETHOPRIM
  5. FARXIGA [Concomitant]
     Active Substance: DAPAGLIFLOZIN PROPANEDIOL
  6. MYCOPHENOLATE MOFETIL [Concomitant]
     Active Substance: MYCOPHENOLATE MOFETIL
  7. NIFEDIPINE [Concomitant]
     Active Substance: NIFEDIPINE
  8. OMEPRAZOLE [Concomitant]
     Active Substance: OMEPRAZOLE
  9. VITAMIN D2 [Concomitant]
     Active Substance: ERGOCALCIFEROL
  10. ERRIN [Concomitant]
     Active Substance: NORETHINDRONE
  11. CELLCEPT [Concomitant]
     Active Substance: MYCOPHENOLATE MOFETIL

REACTIONS (14)
  - Blood calcium decreased [Unknown]
  - Blood albumin decreased [Unknown]
  - Neutrophil count increased [Unknown]
  - Blood phosphorus decreased [Unknown]
  - Blood glucose increased [Unknown]
  - Glucose urine present [Unknown]
  - Urinary occult blood positive [Unknown]
  - Red blood cells urine positive [Unknown]
  - Urinary tract infection fungal [Unknown]
  - White blood cells urine [Unknown]
  - Bacterial test positive [Unknown]
  - White blood cell count increased [Unknown]
  - Blood alkaline phosphatase decreased [Unknown]
  - Weight increased [Unknown]

NARRATIVE: CASE EVENT DATE: 20250630
